FAERS Safety Report 7812845-6 (Version None)
Quarter: 2011Q4

REPORT INFORMATION
  Report Type: 
  Country: None (occurrence: None)
  Receive Date: 20111013
  Receipt Date: 20111005
  Transmission Date: 20120403
  Serious: Yes (Hospitalization, Other)
  Sender: FDA-Public Use
  Company Number: JP-CEPHALON-2011000899

PATIENT
  Age: 73 Year
  Sex: Female
  Weight: 55 kg

DRUGS (10)
  1. BENDAMUSTINE HCL [Suspect]
     Route: 042
     Dates: start: 20110317, end: 20110318
  2. CLARITHROMYCIN [Concomitant]
     Dates: start: 20110404
  3. SULFAMETHOXAZOL [Concomitant]
     Dates: start: 20050101
  4. SODIUM PICOSULFATE [Concomitant]
     Dates: start: 20100301
  5. ACYCLOVIR [Concomitant]
     Dates: start: 20110124
  6. TRIAMCINOLONE ACETONIDE [Concomitant]
  7. BENDAMUSTINE HCL [Suspect]
     Indication: B-CELL LYMPHOMA
     Route: 042
     Dates: start: 20110125, end: 20110126
  8. BENDAMUSTINE HCL [Suspect]
     Route: 042
     Dates: start: 20110413
  9. MAGNESIUM OXIDE [Concomitant]
     Dates: start: 20110308
  10. REBAMIPIDE [Concomitant]
     Dates: start: 20050101

REACTIONS (8)
  - LYMPHOPENIA [None]
  - THROMBOCYTOPENIA [None]
  - LEUKOPENIA [None]
  - GASTROOESOPHAGEAL REFLUX DISEASE [None]
  - TOXIC SKIN ERUPTION [None]
  - NAUSEA [None]
  - NEUTROPENIA [None]
  - MALAISE [None]
